FAERS Safety Report 21300409 (Version 3)
Quarter: 2022Q3

REPORT INFORMATION
  Report Type: Spontaneous
  Country: US (occurrence: US)
  Receive Date: 20220907
  Receipt Date: 20220926
  Transmission Date: 20221027
  Serious: No
  Sender: FDA-Public Use
  Company Number: US-HETERO-HET2022US02177

PATIENT
  Sex: Male
  Weight: 83 kg

DRUGS (2)
  1. IRBESARTAN [Suspect]
     Active Substance: IRBESARTAN
     Indication: Blood pressure measurement
     Dosage: 150 MG, BOTTLE OF 90 TABLETS
     Route: 065
  2. IRBESARTAN [Suspect]
     Active Substance: IRBESARTAN
     Indication: Bundle branch block right
     Dosage: 75 MG, P.M.(ONCE IN THE EVENING)
     Route: 065

REACTIONS (4)
  - Pruritus [Recovered/Resolved]
  - Wrong technique in product usage process [Unknown]
  - Urticaria [Recovered/Resolved]
  - Swollen tongue [Recovered/Resolved]
